FAERS Safety Report 7266398-4 (Version None)
Quarter: 2011Q1

REPORT INFORMATION
  Report Type: 
  Country: None (occurrence: None)
  Receive Date: 20110131
  Receipt Date: 20110124
  Transmission Date: 20110831
  Serious: Yes (Other)
  Sender: FDA-Public Use
  Company Number: BR-PFIZER INC-2011017185

PATIENT
  Age: 44 Year
  Sex: Female
  Weight: 98 kg

DRUGS (2)
  1. DEPO-PROVERA [Suspect]
     Indication: MENSTRUAL DISCOMFORT
     Dosage: 150 MG, UNK
     Route: 030
     Dates: start: 20040101
  2. DEPO-PROVERA [Suspect]
     Indication: OFF LABEL USE
     Dosage: 150 MG, UNK
     Route: 030
     Dates: start: 19960101, end: 20040101

REACTIONS (5)
  - THYROID OPERATION [None]
  - GLUCOSE TOLERANCE IMPAIRED [None]
  - LOSS OF CONSCIOUSNESS [None]
  - SYNCOPE [None]
  - HEADACHE [None]
